FAERS Safety Report 5388533-5 (Version None)
Quarter: 2007Q3

REPORT INFORMATION
  Report Type: 
  Country: None (occurrence: None)
  Receive Date: 20070711
  Receipt Date: 20070626
  Transmission Date: 20080115
  Serious: Yes (Other)
  Sender: FDA-Public Use
  Company Number: DSJ-2007-03807

PATIENT
  Age: 51 Year
  Sex: Male
  Weight: 85.9 kg

DRUGS (4)
  1. OLMETEC (OLMESARTAN MEDOXOMIL) (TABLET) (OLMESARTAN MEDOXOMIL) [Suspect]
     Indication: ESSENTIAL HYPERTENSION
     Dosage: 20 MG (20 MG, 1 IN 1 D), PER ORAL
     Route: 048
     Dates: start: 20061106, end: 20070410
  2. ARTIST (CARVEDILOL) (CARVEDILOL) [Concomitant]
  3. LONGES (LISINOPRIL) (LISINOPRIL) [Concomitant]
  4. AMLODIN (AMLODIPINE BESILATE) (AMLODIPINE BESILATE) [Concomitant]

REACTIONS (1)
  - PAROSMIA [None]
